FAERS Safety Report 8273911-7 (Version None)
Quarter: 2012Q2

REPORT INFORMATION
  Report Type: 
  Country: None (occurrence: None)
  Receive Date: 20120406
  Receipt Date: 20120406
  Transmission Date: 20120825
  Serious: Yes (Disabling)
  Sender: FDA-Public Use
  Company Number: None

PATIENT
  Sex: Male
  Weight: 92.9874 kg

DRUGS (4)
  1. VYTORIN [Concomitant]
  2. AVODART [Suspect]
     Indication: PROSTATITIS
     Dosage: 500MG ONCE/DAY ORAL
     Route: 048
     Dates: start: 20110329, end: 20110412
  3. AVODART [Suspect]
     Indication: PROSTATIC ATROPHY
     Dosage: 500MG ONCE/DAY ORAL
     Route: 048
     Dates: start: 20110329, end: 20110412
  4. WARFARIN SODIUM [Concomitant]

REACTIONS (4)
  - ERECTILE DYSFUNCTION [None]
  - NIPPLE DISORDER [None]
  - GYNAECOMASTIA [None]
  - LOSS OF LIBIDO [None]
